FAERS Safety Report 7156372-0 (Version None)
Quarter: 2010Q4

REPORT INFORMATION
  Report Type: 
  Country: None (occurrence: None)
  Receive Date: 20101214
  Receipt Date: 20101202
  Transmission Date: 20110411
  Serious: Yes (Other)
  Sender: FDA-Public Use
  Company Number: KR-SANOFI-AVENTIS-2010SA073068

PATIENT
  Age: 70 Year
  Sex: Male
  Weight: 52 kg

DRUGS (4)
  1. OXALIPLATIN [Suspect]
     Indication: CHEMOTHERAPY
     Route: 042
     Dates: start: 20081211, end: 20081211
  2. MEGESTROL ACETATE [Concomitant]
     Route: 048
     Dates: start: 20081210
  3. OXYCONTIN [Concomitant]
     Route: 048
     Dates: start: 20081210
  4. FAMOTIDINE [Concomitant]
     Route: 042
     Dates: start: 20081210

REACTIONS (3)
  - ASTHENIA [None]
  - DELIRIUM [None]
  - DRUG INTOLERANCE [None]
